FAERS Safety Report 5905911-3 (Version None)
Quarter: 2008Q4

REPORT INFORMATION
  Report Type: 
  Country: None (occurrence: None)
  Receive Date: 20081001
  Receipt Date: 20081001
  Transmission Date: 20090506
  Serious: Yes (Other)
  Sender: FDA-Public Use
  Company Number: None

PATIENT
  Age: 24 Year
  Sex: Female
  Weight: 78.9259 kg

DRUGS (1)
  1. SENSORCAINE [Suspect]
     Indication: EPIDURAL ANAESTHESIA
     Dosage: 0.15%/125ML
     Dates: start: 20080925, end: 20080925

REACTIONS (3)
  - CSF GLUCOSE DECREASED [None]
  - MENINGITIS [None]
  - POST PROCEDURAL COMPLICATION [None]
